FAERS Safety Report 19177876 (Version 6)
Quarter: 2022Q2

REPORT INFORMATION
  Report Type: Spontaneous
  Country: JP (occurrence: JP)
  Receive Date: 20210426
  Receipt Date: 20220620
  Transmission Date: 20220721
  Serious: Yes (Hospitalization, Other)
  Sender: FDA-Public Use
  Company Number: JP-ONO-2021JP009782

PATIENT
  Age: 63 Year
  Sex: Male
  Weight: 67.4 kg

DRUGS (10)
  1. PARSABIV [Suspect]
     Active Substance: ETELCALCETIDE HYDROCHLORIDE
     Indication: Hyperparathyroidism secondary
     Dosage: 2.5 MILLIGRAM, Q56H
     Route: 010
     Dates: start: 20200411, end: 20210121
  2. PARSABIV [Suspect]
     Active Substance: ETELCALCETIDE HYDROCHLORIDE
     Dosage: 5 MILLIGRAM, Q56H
     Route: 010
     Dates: start: 20210123
  3. DARBEPOETIN ALFA [Concomitant]
     Active Substance: DARBEPOETIN ALFA
     Dosage: 5 MICROGRAM, QWK
     Route: 065
     Dates: start: 20210616, end: 20210729
  4. DARBEPOETIN ALFA [Concomitant]
     Active Substance: DARBEPOETIN ALFA
     Dosage: 5 MICROGRAM, QWK
     Route: 065
     Dates: start: 20210616, end: 20210729
  5. ROCALTROL [Concomitant]
     Active Substance: CALCITRIOL
     Dosage: 0.5 UG, Q84H
     Route: 065
     Dates: end: 20210608
  6. ROCALTROL [Concomitant]
     Active Substance: CALCITRIOL
     Dosage: 0.5 UG, Q56H
     Route: 065
     Dates: start: 20210612, end: 20210828
  7. ROCALTROL [Concomitant]
     Active Substance: CALCITRIOL
     Dosage: 0.5 UG, Q84H
     Route: 065
     Dates: start: 20210831
  8. CALCIUM POLYSTYRENE SULFONATE [Concomitant]
     Active Substance: CALCIUM POLYSTYRENE SULFONATE
     Dosage: 5 G, EVERYDAY
     Route: 048
  9. CALCIUM CARBONATE [Concomitant]
     Active Substance: CALCIUM CARBONATE
     Dosage: 3000 MG, EVERYDAY
     Route: 065
  10. FERRIC CITRATE ANHYDROUS [Concomitant]
     Active Substance: FERRIC CITRATE ANHYDROUS
     Dosage: 1000 MG, EVERYDAY
     Route: 048

REACTIONS (5)
  - Peripheral arterial occlusive disease [Recovered/Resolved]
  - Angina pectoris [Recovered/Resolved]
  - Peripheral arterial occlusive disease [Recovered/Resolved]
  - Cerebral infarction [Not Recovered/Not Resolved]
  - Shunt stenosis [Recovered/Resolved]

NARRATIVE: CASE EVENT DATE: 20200507
